FAERS Safety Report 15531215 (Version 1)
Quarter: 2018Q4

REPORT INFORMATION
  Report Type: Spontaneous
  Country: US (occurrence: US)
  Receive Date: 20181019
  Receipt Date: 20181019
  Transmission Date: 20190205
  Serious: Yes (Other)
  Sender: FDA-Public Use
  Company Number: US-DRREDDYS-USA/USA/18/0104822

PATIENT
  Age: 55 Year
  Sex: Female

DRUGS (2)
  1. MINOCYCLINE HYDROCHLORIDE. [Suspect]
     Active Substance: MINOCYCLINE HYDROCHLORIDE
     Indication: WOUND INFECTION
     Route: 048
  2. MEROPENEM. [Suspect]
     Active Substance: MEROPENEM
     Indication: WOUND INFECTION
     Route: 042

REACTIONS (4)
  - Dysgeusia [Unknown]
  - Tongue discolouration [Recovered/Resolved]
  - Nausea [Unknown]
  - Trichoglossia [Recovered/Resolved]
